FAERS Safety Report 11689265 (Version 3)
Quarter: 2015Q4

REPORT INFORMATION
  Report Type: Spontaneous
  Country: US (occurrence: US)
  Receive Date: 20151102
  Receipt Date: 20151210
  Transmission Date: 20160304
  Serious: Yes (Hospitalization, Other)
  Sender: FDA-Public Use
  Company Number: US-UCBSA-2015034427

PATIENT
  Age: 25 Year
  Sex: Female

DRUGS (5)
  1. METOPROLOL TARTRATE. [Concomitant]
     Active Substance: METOPROLOL TARTRATE
     Indication: PRODUCT USED FOR UNKNOWN INDICATION
     Dosage: UNK
  2. CIMZIA [Suspect]
     Active Substance: CERTOLIZUMAB PEGOL
     Indication: CROHN^S DISEASE
     Dosage: 400 MG, EV 2 WEEKS(AT 0, 2, 4 WEEKS)
     Route: 058
     Dates: start: 20151001, end: 20151030
  3. IRON [Concomitant]
     Active Substance: IRON
     Indication: PRODUCT USED FOR UNKNOWN INDICATION
     Dosage: UNK
  4. AMOXICILLIN. [Concomitant]
     Active Substance: AMOXICILLIN
     Indication: URINARY TRACT INFECTION
     Dosage: UNK
  5. CIMZIA [Suspect]
     Active Substance: CERTOLIZUMAB PEGOL
     Dosage: 400 MG, EV 4 WEEKS
     Route: 058
     Dates: start: 201511

REACTIONS (5)
  - Urinary tract infection [Unknown]
  - Pyrexia [Unknown]
  - Pregnancy [Unknown]
  - Crohn^s disease [Unknown]
  - Dehydration [Unknown]

NARRATIVE: CASE EVENT DATE: 201510
